FAERS Safety Report 10455154 (Version 3)
Quarter: 2017Q4

REPORT INFORMATION
  Report Type: Spontaneous
  Country: AU (occurrence: AU)
  Receive Date: 20140916
  Receipt Date: 20171108
  Transmission Date: 20180320
  Serious: Yes (Life-Threatening, Hospitalization, Other)
  Sender: FDA-Public Use
  Company Number: AU-ROCHE-1461977

PATIENT
  Sex: Female

DRUGS (3)
  1. XOLAIR [Suspect]
     Active Substance: OMALIZUMAB
     Indication: ASTHMA
     Route: 058
  2. ADRENALINE [Concomitant]
     Active Substance: EPINEPHRINE
     Indication: PROPHYLAXIS
     Route: 041
  3. XOLAIR [Suspect]
     Active Substance: OMALIZUMAB
     Indication: CHRONIC SPONTANEOUS URTICARIA

REACTIONS (2)
  - Anaphylactic reaction [Recovered/Resolved]
  - Blood immunoglobulin E increased [Unknown]
